FAERS Safety Report 25970296 (Version 1)
Quarter: 2025Q4

REPORT INFORMATION
  Report Type: Spontaneous
  Country: EU (occurrence: EU)
  Receive Date: 20251028
  Receipt Date: 20251028
  Transmission Date: 20260118
  Serious: Yes (Hospitalization, Other)
  Sender: AMGEN
  Company Number: EU-AMGEN-ESPSP2025210806

PATIENT
  Sex: Female

DRUGS (4)
  1. ROMIPLOSTIM [Suspect]
     Active Substance: ROMIPLOSTIM
     Indication: Immune thrombocytopenia
     Dosage: UNK
     Route: 065
  2. ROMIPLOSTIM [Suspect]
     Active Substance: ROMIPLOSTIM
     Dosage: 9 MICROGRAM/KILOGRAM, QWK
     Route: 065
     Dates: start: 202501
  3. CYCLOSPORINE [Concomitant]
     Active Substance: CYCLOSPORINE
  4. FOSTAMATINIB [Concomitant]
     Active Substance: FOSTAMATINIB
     Dosage: 100 MILLIGRAM, Q12H

REACTIONS (5)
  - Diverticulitis [Unknown]
  - Thrombocytopenia [Unknown]
  - Haemorrhage [Recovering/Resolving]
  - Musculoskeletal pain [Unknown]
  - Therapy non-responder [Unknown]
